FAERS Safety Report 21931270 (Version 1)
Quarter: 2023Q1

REPORT INFORMATION
  Report Type: Spontaneous
  Country: US (occurrence: US)
  Receive Date: 20230131
  Receipt Date: 20230131
  Transmission Date: 20230417
  Serious: No
  Sender: FDA-Public Use
  Company Number: US-CIPLA LTD.-2022US07663

PATIENT

DRUGS (4)
  1. ALBUTEROL [Suspect]
     Active Substance: ALBUTEROL
     Indication: Dyspnoea
     Dosage: 0.09 MILLIGRAM, TID
     Dates: start: 202210
  2. ALBUTEROL [Suspect]
     Active Substance: ALBUTEROL
     Indication: Cough
  3. PRAVACHOL [Concomitant]
     Active Substance: PRAVASTATIN SODIUM
     Indication: Blood cholesterol increased
     Dosage: 40 MILLIGRAM, QD (FROM PAST 5 YEARS)
     Route: 048
  4. MOBIC [Concomitant]
     Active Substance: MELOXICAM
     Indication: Arthritis
     Dosage: 7.5 MILLIGRAM, QD (FROM PAST 8 MONTHS)
     Route: 048

REACTIONS (2)
  - Dyspnoea [Not Recovered/Not Resolved]
  - Incorrect dose administered by device [Unknown]

NARRATIVE: CASE EVENT DATE: 20221114
